FAERS Safety Report 8852892 (Version 1)
Quarter: 2012Q4

REPORT INFORMATION
  Report Type: 
  Country: JP (occurrence: JP)
  Receive Date: 20121022
  Receipt Date: 20121022
  Transmission Date: 20130627
  Serious: Yes (Hospitalization)
  Sender: FDA-Public Use
  Company Number: JP-OTSUKA-JP-2012-16320

PATIENT
  Age: 56 Year
  Sex: Female
  Weight: 80 kg

DRUGS (6)
  1. SAMSCA [Suspect]
     Indication: CARDIAC FAILURE CONGESTIVE
     Dosage: 15 Mg milligram(s), qd
     Route: 048
     Dates: start: 20120902, end: 20120902
  2. LASIX [Concomitant]
     Indication: CARDIAC FAILURE CONGESTIVE
     Dosage: 20 Mg milligram(s), qd
     Route: 042
     Dates: start: 20120828, end: 20120903
  3. PREDOPA [Concomitant]
     Indication: CARDIAC FAILURE
     Dosage: 200 ml millilitre(s), daily dose
     Route: 041
     Dates: start: 20120828
  4. DOBUTAMINE [Concomitant]
     Indication: CARDIAC FAILURE
     Dosage: 2 DF dosage form, daily dose
     Route: 041
     Dates: start: 20120828
  5. ISOTONIC SODIUM CHLORIDE SOLUTION [Concomitant]
     Dosage: 100 ml millilitre(s), daily dose
     Route: 041
     Dates: start: 20120828, end: 20120902
  6. SIGMART [Concomitant]
     Indication: CORONARY ARTERY DILATATION
     Dosage: 24 Mg milligram(s), daily dose
     Route: 041
     Dates: start: 20120828, end: 20120902

REACTIONS (2)
  - Hypernatraemia [Recovered/Resolved]
  - Depressed level of consciousness [Recovered/Resolved]
